FAERS Safety Report 17160128 (Version 1)
Quarter: 2019Q4

REPORT INFORMATION
  Report Type: Spontaneous
  Country: US (occurrence: US)
  Receive Date: 20191216
  Receipt Date: 20191216
  Transmission Date: 20200122
  Serious: No
  Sender: FDA-Public Use
  Company Number: US-BIOGEN-2019BI00806702

PATIENT
  Sex: Female

DRUGS (1)
  1. TYSABRI [Suspect]
     Active Substance: NATALIZUMAB
     Indication: MULTIPLE SCLEROSIS
     Route: 042
     Dates: start: 20160210

REACTIONS (8)
  - Feeling hot [Unknown]
  - Fatigue [Unknown]
  - Irritability [Unknown]
  - Mental impairment [Unknown]
  - Feeling abnormal [Unknown]
  - Stress [Unknown]
  - Clumsiness [Unknown]
  - Arthritis [Unknown]
